FAERS Safety Report 25894590 (Version 2)
Quarter: 2025Q4

REPORT INFORMATION
  Report Type: Report from Study
  Country: US (occurrence: US)
  Receive Date: 20251008
  Receipt Date: 20251020
  Transmission Date: 20260117
  Serious: Yes (Other)
  Sender: UPSHER SMITH LABORATORIES
  Company Number: US-UPSHER-SMITH LABORATORIES, LLC-20250901271

PATIENT
  Age: 32 Year
  Sex: Female

DRUGS (8)
  1. ISOTRETINOIN [Suspect]
     Active Substance: ISOTRETINOIN
     Indication: Acne
     Dosage: UNK
     Route: 065
     Dates: start: 2018, end: 2018
  2. ISOTRETINOIN [Suspect]
     Active Substance: ISOTRETINOIN
     Dosage: UNK
     Route: 065
     Dates: start: 2019, end: 2019
  3. ISOTRETINOIN [Suspect]
     Active Substance: ISOTRETINOIN
     Dosage: 40 MG, QD
     Route: 065
     Dates: start: 20250625, end: 20250929
  4. MYORISAN [Concomitant]
     Active Substance: ISOTRETINOIN
     Indication: Product used for unknown indication
     Dosage: 40 MG
     Route: 065
  5. CLARAVIS [Concomitant]
     Active Substance: ISOTRETINOIN
     Indication: Product used for unknown indication
     Dosage: 40 MG
     Route: 065
  6. CLARAVIS [Concomitant]
     Active Substance: ISOTRETINOIN
     Dosage: 30 MG
     Route: 065
  7. ABSORICA [Concomitant]
     Active Substance: ISOTRETINOIN
     Indication: Product used for unknown indication
     Dosage: 40 MG
     Route: 065
  8. AMNESTEEM [Concomitant]
     Active Substance: ISOTRETINOIN
     Indication: Product used for unknown indication
     Dosage: 40 MG
     Route: 065

REACTIONS (3)
  - Exposure during pregnancy [Unknown]
  - Ectopic pregnancy [Recovering/Resolving]
  - Abortion [Unknown]

NARRATIVE: CASE EVENT DATE: 20251003
